FAERS Safety Report 25440863 (Version 1)
Quarter: 2025Q2

REPORT INFORMATION
  Report Type: Spontaneous
  Country: US (occurrence: US)
  Receive Date: 20250616
  Receipt Date: 20250616
  Transmission Date: 20250717
  Serious: No
  Sender: UCB
  Company Number: US-UCBSA-2025016041

PATIENT
  Age: 40 Year
  Sex: Female

DRUGS (1)
  1. BIMZELX [Suspect]
     Active Substance: BIMEKIZUMAB-BKZX
     Indication: Hidradenitis
     Dosage: 320 MILLIGRAM, EV 2 WEEKS(QOW)
     Route: 058
     Dates: start: 20250309

REACTIONS (5)
  - Dizziness [Unknown]
  - Urinary tract infection [Unknown]
  - Vision blurred [Unknown]
  - Eye swelling [Unknown]
  - Eye irritation [Unknown]

NARRATIVE: CASE EVENT DATE: 20250310
